FAERS Safety Report 10156967 (Version 1)
Quarter: 2014Q2

REPORT INFORMATION
  Report Type: Spontaneous
  Country: US (occurrence: None)
  Receive Date: 20140506
  Receipt Date: 20140506
  Transmission Date: 20141212
  Serious: Yes (Hospitalization)
  Sender: FDA-Public Use
  Company Number: None

PATIENT
  Age: 52 Year
  Sex: Female
  Weight: 84 kg

DRUGS (15)
  1. CYCLOPHOSPHAMIDE [Suspect]
  2. DOXORUBICIN HYDROCHLORIDE [Suspect]
  3. ETOPOSIDE (VP-16) [Suspect]
  4. PREDNISONE [Suspect]
  5. RITUXIMAB (MOAB C2B8 ANTI CD20, CHIMERIC) [Suspect]
  6. VINCRISTINE SULFATE [Suspect]
  7. COLACE [Concomitant]
  8. EQ SENNA [Concomitant]
  9. MAALOX [Concomitant]
  10. MORPHINE SULFATE [Concomitant]
  11. PANTOPRAZOLE [Concomitant]
  12. PERCOCET [Concomitant]
  13. RANITIDINE [Concomitant]
  14. ROXANOL [Concomitant]
  15. ZOFRAN [Concomitant]

REACTIONS (2)
  - Neutrophil count decreased [None]
  - Stomatitis [None]
